FAERS Safety Report 7364362-8 (Version None)
Quarter: 2011Q1

REPORT INFORMATION
  Report Type: 
  Country: None (occurrence: None)
  Receive Date: 20110321
  Receipt Date: 20110317
  Transmission Date: 20110831
  Serious: Yes (Hospitalization)
  Sender: FDA-Public Use
  Company Number: BR-ABBOTT-11P-020-0703354-00

PATIENT
  Sex: Female
  Weight: 56 kg

DRUGS (2)
  1. HUMIRA [Suspect]
     Indication: RHEUMATOID ARTHRITIS
     Route: 058
     Dates: start: 20101101, end: 20110101
  2. METHOTREXATE [Concomitant]
     Indication: ARTHRITIS

REACTIONS (6)
  - HYPOPHAGIA [None]
  - WEIGHT DECREASED [None]
  - SYSTEMIC LUPUS ERYTHEMATOSUS [None]
  - DENGUE FEVER [None]
  - GAIT DISTURBANCE [None]
  - BLOOD CHOLESTEROL INCREASED [None]
